FAERS Safety Report 8487777-3 (Version None)
Quarter: 2012Q3

REPORT INFORMATION
  Report Type: 
  Country: None (occurrence: None)
  Receive Date: 20120705
  Receipt Date: 20120629
  Transmission Date: 20120928
  Serious: Yes (Other)
  Sender: FDA-Public Use
  Company Number: US-PFIZER INC-2012122466

PATIENT
  Sex: Female
  Weight: 102 kg

DRUGS (3)
  1. PREMARIN [Suspect]
     Indication: VULVOVAGINAL PAIN
     Dosage: UNK, 2X/WEEK
     Route: 067
  2. METOPROLOL TARTRATE [Concomitant]
     Indication: MYOCARDIAL INFARCTION
     Dosage: 25 MG, 2X/DAY
  3. SIMVASTATIN [Concomitant]
     Indication: MYOCARDIAL INFARCTION
     Dosage: UNK, DAILY

REACTIONS (1)
  - TYPE 2 DIABETES MELLITUS [None]
